FAERS Safety Report 9120917 (Version 2)
Quarter: 2015Q2

REPORT INFORMATION
  Report Type: Spontaneous
  Country: DE (occurrence: DE)
  Receive Date: 20130226
  Receipt Date: 20150417
  Transmission Date: 20150821
  Serious: Yes (Other)
  Sender: FDA-Public Use
  Company Number: DE-ROCHE-1194182

PATIENT
  Age: 4 Year
  Sex: Male

DRUGS (2)
  1. XOLAIR [Suspect]
     Active Substance: OMALIZUMAB
     Indication: PRODUCT USED FOR UNKNOWN INDICATION
     Route: 064
  2. XOLAIR [Suspect]
     Active Substance: OMALIZUMAB
     Route: 063

REACTIONS (3)
  - Exposure during breast feeding [Unknown]
  - Psoriasis [Not Recovered/Not Resolved]
  - Foetal exposure during pregnancy [Unknown]
